FAERS Safety Report 8566792-5 (Version None)
Quarter: 2012Q3

REPORT INFORMATION
  Report Type: 
  Country: None (occurrence: None)
  Receive Date: 20120803
  Receipt Date: 20110817
  Transmission Date: 20120928
  Serious: No
  Sender: FDA-Public Use
  Company Number: US-ABBOTT-11P-163-0848076-00

PATIENT
  Sex: Female

DRUGS (3)
  1. NIASPAN [Suspect]
     Dates: start: 20110601
  2. ASPIRIN [Concomitant]
     Indication: PROPHYLAXIS
     Dosage: AT LEAST 30 MIN BEFORE NIASPAN DOSE
     Dates: start: 20110501
  3. NIASPAN [Suspect]
     Indication: BLOOD TRIGLYCERIDES INCREASED
     Dosage: AT NIGHT
     Dates: start: 20110501, end: 20110601

REACTIONS (4)
  - RASH MACULAR [None]
  - PRURITUS GENERALISED [None]
  - PARAESTHESIA [None]
  - RASH [None]
